FAERS Safety Report 8801901 (Version 1)
Quarter: 2012Q4

REPORT INFORMATION
  Report Type: 
  Country: US (occurrence: US)
  Receive Date: 20120921
  Receipt Date: 20120921
  Transmission Date: 20130627
  Serious: Yes (Death)
  Sender: FDA-Public Use
  Company Number: US-ROCHE-1097838

PATIENT
  Sex: Female

DRUGS (4)
  1. AVASTIN [Suspect]
     Indication: RENAL CANCER
     Route: 065
     Dates: start: 20091216
  2. AVASTIN [Suspect]
     Indication: BONE NEOPLASM MALIGNANT
  3. AVASTIN [Suspect]
     Indication: METASTASES TO NERVOUS SYSTEM
  4. AVASTIN [Suspect]
     Indication: NEOPLASM MALIGNANT

REACTIONS (1)
  - Death [Fatal]
